FAERS Safety Report 7325751-0 (Version None)
Quarter: 2011Q1

REPORT INFORMATION
  Report Type: 
  Country: None (occurrence: None)
  Receive Date: 20110302
  Receipt Date: 20110224
  Transmission Date: 20110831
  Serious: Yes (Other)
  Sender: FDA-Public Use
  Company Number: US-PFIZER INC-2011041026

PATIENT
  Sex: Female
  Weight: 52.154 kg

DRUGS (3)
  1. EFFEXOR XR [Suspect]
     Indication: DEPRESSION
     Dosage: 75 MG, 2X/DAY
     Route: 048
     Dates: end: 20110204
  2. AVAPRO [Concomitant]
     Indication: HYPERTENSION
     Dosage: 150 MG, 1X/DAY
  3. PREMARIN [Concomitant]
     Dosage: 0.3 MG, 1X/DAY

REACTIONS (5)
  - DRUG WITHDRAWAL SYNDROME [None]
  - ACTIVITIES OF DAILY LIVING IMPAIRED [None]
  - COORDINATION ABNORMAL [None]
  - THINKING ABNORMAL [None]
  - SUICIDAL IDEATION [None]
